FAERS Safety Report 20193031 (Version 1)
Quarter: 2021Q4

REPORT INFORMATION
  Report Type: Spontaneous
  Country: NO (occurrence: NO)
  Receive Date: 20211216
  Receipt Date: 20211216
  Transmission Date: 20220303
  Serious: Yes (Death, Hospitalization)
  Sender: FDA-Public Use
  Company Number: None

PATIENT
  Age: 80 Year
  Sex: Male

DRUGS (18)
  1. TRAMADOL [Interacting]
     Active Substance: TRAMADOL
     Indication: Pain
     Dosage: DOSE NOT FINALLY VERIFIED, BUT A NORMAL DOSE WAS GIVEN ACCORDING TO THE REPORTER.
     Dates: start: 20210328
  2. COMIRNATY [Suspect]
     Active Substance: TOZINAMERAN
     Indication: Immunisation
     Dosage: DOSE NO. IN SERIES: UNKNOWN. VACCINATION SITE: LEFTARM.
     Route: 030
     Dates: start: 20210324
  3. NEURONTIN [Interacting]
     Active Substance: GABAPENTIN
     Indication: Pain
     Dosage: 900 MILLIGRAM DAILY; DOSE TITRATED UP TO 300 MGX3
     Route: 048
     Dates: start: 20210403
  4. Behepan [Concomitant]
  5. MOXONIDINE [Concomitant]
     Active Substance: MOXONIDINE
  6. AZITHROMYCIN ANHYDROUS [Concomitant]
     Active Substance: AZITHROMYCIN ANHYDROUS
     Dosage: 500 MG
     Route: 048
  7. Paralgin Forte [Concomitant]
  8. DUTASTERIDE\TAMSULOSIN [Concomitant]
     Active Substance: DUTASTERIDE\TAMSULOSIN
  9. ACETAMINOPHEN [Concomitant]
     Active Substance: ACETAMINOPHEN
  10. Furix [Concomitant]
  11. MIRABEGRON [Concomitant]
     Active Substance: MIRABEGRON
  12. AMLODIPINE [Concomitant]
     Active Substance: AMLODIPINE BESYLATE
  13. ALLOPURINOL [Concomitant]
     Active Substance: ALLOPURINOL
  14. EZETIMIBE [Concomitant]
     Active Substance: EZETIMIBE
  15. PLAVIX [Concomitant]
     Active Substance: CLOPIDOGREL BISULFATE
  16. BACTRIM [Concomitant]
     Active Substance: SULFAMETHOXAZOLE\TRIMETHOPRIM
     Dosage: FOR ACTIVE INGREDIENT TRIMETHOPRIM THE STRENGTH IS 80 MILLIGRAM .?FOR ACTIVE INGREDIENT SULFAMETHOXA
  17. Renitec [Concomitant]
  18. CARVEDILOL [Concomitant]
     Active Substance: CARVEDILOL

REACTIONS (9)
  - Polyneuropathy [Fatal]
  - Pain [Fatal]
  - Poisoning [Fatal]
  - Drug interaction [Fatal]
  - Muscular weakness [Fatal]
  - Spinal stenosis [Fatal]
  - Cardiac arrest [Fatal]
  - Myopathy [Fatal]
  - Renal failure [Fatal]

NARRATIVE: CASE EVENT DATE: 20210328
